FAERS Safety Report 12290168 (Version 1)
Quarter: 2016Q2

REPORT INFORMATION
  Report Type: Spontaneous
  Country: US (occurrence: US)
  Receive Date: 20160421
  Receipt Date: 20160421
  Transmission Date: 20160815
  Serious: Yes (Other)
  Sender: FDA-Public Use
  Company Number: US-ROCHE-1742218

PATIENT
  Sex: Female

DRUGS (5)
  1. BONIVA [Suspect]
     Active Substance: IBANDRONATE SODIUM
     Indication: PSORIATIC ARTHROPATHY
     Route: 065
     Dates: start: 201510
  2. UNKNOWN MEDICATION [Concomitant]
     Active Substance: UNSPECIFIED INGREDIENT
     Indication: BLOOD PRESSURE MEASUREMENT
  3. HUMIRA [Concomitant]
     Active Substance: ADALIMUMAB
  4. MUCINEX [Concomitant]
     Active Substance: GUAIFENESIN
     Indication: COUGH
  5. BONIVA [Suspect]
     Active Substance: IBANDRONATE SODIUM
     Indication: PSORIATIC ARTHROPATHY
     Route: 065

REACTIONS (14)
  - Hypoacusis [Not Recovered/Not Resolved]
  - Cough [Not Recovered/Not Resolved]
  - Infection [Unknown]
  - Hyperhidrosis [Unknown]
  - Swollen tongue [Unknown]
  - Blood calcium decreased [Unknown]
  - Muscle spasms [Not Recovered/Not Resolved]
  - Swelling face [Unknown]
  - Vision blurred [Unknown]
  - Productive cough [Not Recovered/Not Resolved]
  - Musculoskeletal stiffness [Unknown]
  - Tremor [Unknown]
  - Pollakiuria [Unknown]
  - White blood cell count increased [Unknown]
